FAERS Safety Report 7292841-0 (Version None)
Quarter: 2011Q1

REPORT INFORMATION
  Report Type: 
  Country: None (occurrence: None)
  Receive Date: 20110203
  Receipt Date: 20110119
  Transmission Date: 20110831
  Serious: Yes (Hospitalization)
  Sender: FDA-Public Use
  Company Number: 002262

PATIENT
  Sex: Male
  Weight: 75 kg

DRUGS (9)
  1. ROTIGOTINE (NEUPRO) [Suspect]
     Indication: PARKINSON'S DISEASE
     Dosage: 4 MG QD TRANSDERMAL
     Route: 062
     Dates: end: 20090109
  2. NEXIUM [Concomitant]
  3. MADOPAR /01585301/ [Concomitant]
  4. REQUIP [Concomitant]
  5. BELOC ZOK [Concomitant]
  6. MADOPAR /01585301/ [Concomitant]
  7. AZILECT [Concomitant]
  8. STALEVO 100 [Concomitant]
  9. SEROQUEL [Concomitant]

REACTIONS (5)
  - ABDOMINAL PAIN [None]
  - CONDITION AGGRAVATED [None]
  - TINNITUS [None]
  - NECK PAIN [None]
  - AXONAL NEUROPATHY [None]
